FAERS Safety Report 12638767 (Version 1)
Quarter: 2016Q3

REPORT INFORMATION
  Report Type: Spontaneous
  Country: FR (occurrence: FR)
  Receive Date: 20160809
  Receipt Date: 20160809
  Transmission Date: 20161109
  Serious: Yes (Death)
  Sender: FDA-Public Use
  Company Number: FR-SA-2016SA142544

PATIENT
  Age: 54 Year
  Sex: Female

DRUGS (7)
  1. GARDENAL [Suspect]
     Active Substance: PHENOBARBITAL
     Route: 048
  2. URBANYL [Suspect]
     Active Substance: CLOBAZAM
     Route: 048
  3. PAROXETINE HYDROCHLORIDE. [Suspect]
     Active Substance: PAROXETINE HYDROCHLORIDE
     Route: 048
  4. KEPPRA [Suspect]
     Active Substance: LEVETIRACETAM
     Dosage: 500 MG, FILM COATED TABLET?1.5 TABLET MORNING AND EVENING
     Route: 048
  5. DI-HYDAN [Suspect]
     Active Substance: PHENYTOIN
     Dosage: 100 MG COMPRESSED TABLET
     Route: 048
  6. HALDOL [Suspect]
     Active Substance: HALOPERIDOL
     Route: 048
  7. STILNOX [Suspect]
     Active Substance: ZOLPIDEM TARTRATE
     Dosage: 10 MG, FILM COATED DIVISIBLE TABLET
     Route: 048

REACTIONS (10)
  - Intracranial pressure increased [Fatal]
  - Coma [Not Recovered/Not Resolved]
  - Pupils unequal [Unknown]
  - Vomiting [Unknown]
  - Cardio-respiratory arrest [Fatal]
  - Mydriasis [Recovered/Resolved]
  - Brain oedema [Fatal]
  - Bronchial obstruction [Unknown]
  - Mydriasis [Not Recovered/Not Resolved]
  - Hypoxic-ischaemic encephalopathy [Fatal]

NARRATIVE: CASE EVENT DATE: 20160705
